FAERS Safety Report 21352034 (Version 1)
Quarter: 2022Q3

REPORT INFORMATION
  Report Type: Spontaneous
  Country: CN (occurrence: CN)
  Receive Date: 20220920
  Receipt Date: 20220920
  Transmission Date: 20221027
  Serious: Yes (Hospitalization, Other)
  Sender: FDA-Public Use
  Company Number: CN-BRISTOL-MYERS SQUIBB COMPANY-2022-102389

PATIENT
  Age: 29 Year
  Sex: Female
  Weight: 48.90 kg

DRUGS (8)
  1. ABATACEPT [Suspect]
     Active Substance: ABATACEPT
     Indication: Myeloproliferative neoplasm
     Route: 058
     Dates: start: 20220620, end: 20220620
  2. ABATACEPT [Suspect]
     Active Substance: ABATACEPT
     Indication: Prophylaxis
     Route: 058
     Dates: start: 20220627, end: 20220627
  3. ABATACEPT [Suspect]
     Active Substance: ABATACEPT
     Dosage: #1
     Route: 058
     Dates: start: 20220706, end: 20220706
  4. ABATACEPT [Suspect]
     Active Substance: ABATACEPT
     Route: 058
     Dates: start: 20220713, end: 20220713
  5. ABATACEPT [Suspect]
     Active Substance: ABATACEPT
     Dosage: 125 MG, QD
     Route: 058
     Dates: start: 20220720, end: 20220720
  6. ABATACEPT [Suspect]
     Active Substance: ABATACEPT
     Route: 058
     Dates: start: 20220727, end: 20220727
  7. ABATACEPT [Suspect]
     Active Substance: ABATACEPT
     Route: 058
     Dates: start: 20220803, end: 20220803
  8. ABATACEPT [Suspect]
     Active Substance: ABATACEPT
     Route: 058
     Dates: start: 20220810, end: 20220810

REACTIONS (10)
  - Cytomegalovirus viraemia [Unknown]
  - Intentional product use issue [Unknown]
  - Respiratory tract congestion [Recovering/Resolving]
  - Paraesthesia [Recovering/Resolving]
  - Rash [Recovering/Resolving]
  - Arthralgia [Recovering/Resolving]
  - Graft versus host disease [Unknown]
  - Venoocclusive disease [Unknown]
  - Cystitis haemorrhagic [Unknown]
  - Myelodysplastic syndrome [Unknown]

NARRATIVE: CASE EVENT DATE: 20220601
